FAERS Safety Report 24280174 (Version 1)
Quarter: 2024Q3

REPORT INFORMATION
  Report Type: Spontaneous
  Country: CN (occurrence: CN)
  Receive Date: 20240904
  Receipt Date: 20240904
  Transmission Date: 20241017
  Serious: Yes (Hospitalization)
  Sender: BEIGENE
  Company Number: CN-BEIGENE-BGN-2024-013536

PATIENT

DRUGS (3)
  1. TISLELIZUMAB [Suspect]
     Active Substance: TISLELIZUMAB
     Indication: Oesophageal carcinoma
     Dosage: 200 MILLIGRAM
     Route: 041
     Dates: start: 20240411
  2. CATEQUENTINIB [Concomitant]
     Active Substance: CATEQUENTINIB
     Indication: Oesophageal carcinoma
  3. CAPECITABINE [Concomitant]
     Active Substance: CAPECITABINE
     Indication: Oesophageal carcinoma

REACTIONS (2)
  - Hyponatraemia [Unknown]
  - Myocardial necrosis marker increased [Unknown]

NARRATIVE: CASE EVENT DATE: 20240418
